FAERS Safety Report 6059616-1 (Version None)
Quarter: 2009Q1

REPORT INFORMATION
  Report Type: 
  Country: None (occurrence: None)
  Receive Date: 20090130
  Receipt Date: 20090121
  Transmission Date: 20090719
  Serious: Yes (Death, Other)
  Sender: FDA-Public Use
  Company Number: US-ROCHE-604300

PATIENT
  Sex: Female
  Weight: 70 kg

DRUGS (6)
  1. PEG-INTERFERON A-2A (RO 25-8310) [Suspect]
     Indication: HEPATITIS C
     Route: 065
     Dates: start: 20080629, end: 20081208
  2. RIBAVIRIN [Suspect]
     Indication: HEPATITIS C
     Route: 048
     Dates: start: 20080629, end: 20081208
  3. GENGRAF [Concomitant]
     Indication: LIVER TRANSPLANT
     Route: 048
     Dates: start: 20081206, end: 20081213
  4. AMLODIPINE [Concomitant]
     Indication: HYPERTENSION
     Route: 048
     Dates: start: 20080506, end: 20081208
  5. ZOLOFT [Concomitant]
     Indication: DEPRESSION
     Route: 048
     Dates: start: 20081006, end: 20081208
  6. LANTUS [Concomitant]
     Dosage: STRENGTH: 14 MI T  QD
     Route: 058
     Dates: start: 20080506, end: 20081208

REACTIONS (30)
  - ABDOMINAL DISTENSION [None]
  - ASCITES [None]
  - BILE DUCT OBSTRUCTION [None]
  - COMPLICATIONS OF TRANSPLANTED LIVER [None]
  - CONFUSIONAL STATE [None]
  - CULTURE POSITIVE [None]
  - DECREASED APPETITE [None]
  - DIARRHOEA [None]
  - DIZZINESS [None]
  - ESCHERICHIA INFECTION [None]
  - GASTROINTESTINAL OEDEMA [None]
  - HEPATIC FAILURE [None]
  - HEPATIC FIBROSIS [None]
  - HEPATITIS C [None]
  - HEPATITIS CHOLESTATIC [None]
  - HYPOTENSION [None]
  - KLEBSIELLA INFECTION [None]
  - LEIOMYOMA [None]
  - MALAISE [None]
  - MENTAL STATUS CHANGES [None]
  - NODULE [None]
  - OROPHARYNGEAL PAIN [None]
  - PULMONARY OEDEMA [None]
  - PYREXIA [None]
  - RENAL CYST [None]
  - RENAL FAILURE ACUTE [None]
  - RESPIRATORY DISTRESS [None]
  - SEPSIS [None]
  - SPLENOMEGALY [None]
  - TRANSPLANT REJECTION [None]
